FAERS Safety Report 24250189 (Version 1)
Quarter: 2024Q3

REPORT INFORMATION
  Report Type: Spontaneous
  Country: US (occurrence: None)
  Receive Date: 20240825
  Receipt Date: 20240825
  Transmission Date: 20241016
  Serious: Yes (Hospitalization)
  Sender: Public
  Company Number: None

PATIENT
  Age: 51 Year
  Sex: Male

DRUGS (1)
  1. TREMFYA [Suspect]
     Active Substance: GUSELKUMAB
     Indication: Psoriasis
     Dosage: 100MG WEEK 0, WEEK 4 AND EVERY 8 WEEKS THEREAFTER SUBCUTANEOUS
     Route: 058
     Dates: start: 20240812

REACTIONS (2)
  - Rash [None]
  - Urticaria [None]
